FAERS Safety Report 4711952-4 (Version None)
Quarter: 2005Q2

REPORT INFORMATION
  Report Type: 
  Country: None (occurrence: None)
  Receive Date: 20050629
  Receipt Date: 20050421
  Transmission Date: 20051028
  Serious: No
  Sender: FDA-Public Use
  Company Number: 05P-163-0298182-00

PATIENT
  Age: 69 Year
  Sex: Female
  Weight: 68.0396 kg

DRUGS (11)
  1. HUMIRA [Suspect]
     Indication: RHEUMATOID ARTHRITIS
     Dosage: 40 MG, 1 IN 2 WK, SUBCUTANEOUS
     Route: 058
     Dates: start: 20030101, end: 20050301
  2. FEXOFENADINE HYDROCHLORIDE [Concomitant]
  3. ARTHROTEC [Concomitant]
  4. HYDROXYCHLOROQUINE PHOSPHATE [Concomitant]
  5. LOTREL [Concomitant]
  6. METOPROLOL SUCCINATE [Concomitant]
  7. TAMOXIFEN CITRATE [Concomitant]
  8. LEVOTHYROXINE SODIUM [Concomitant]
  9. LOVASTATIN [Concomitant]
  10. DYAZIDE [Concomitant]
  11. FERROUS SULFATE TAB [Concomitant]

REACTIONS (5)
  - ALLERGIC SINUSITIS [None]
  - CYSTITIS [None]
  - NASOPHARYNGEAL DISORDER [None]
  - NASOPHARYNGITIS [None]
  - SINUS CONGESTION [None]
